FAERS Safety Report 6013581-1 (Version None)
Quarter: 2008Q4

REPORT INFORMATION
  Report Type: 
  Country: None (occurrence: None)
  Receive Date: 20081219
  Receipt Date: 20081210
  Transmission Date: 20090506
  Serious: No
  Sender: FDA-Public Use
  Company Number: KR-JNJFOC-20081102714

PATIENT
  Age: 84 Year
  Sex: Female

DRUGS (9)
  1. DURAGESIC-100 [Suspect]
     Indication: ARTHRALGIA
     Dosage: 12.5 MCG/HR ONCE OR TWICE
     Route: 062
  2. DURAGESIC-100 [Suspect]
     Indication: BACK PAIN
     Route: 062
  3. DURAGESIC-100 [Suspect]
     Indication: CONTUSION
     Route: 062
  4. SLEEPING PILL [Concomitant]
     Indication: INSOMNIA
  5. TIZANIDINE HCL [Concomitant]
     Indication: MUSCLE RELAXANT THERAPY
  6. TYLENOL (CAPLET) [Concomitant]
     Indication: PAIN
  7. CELEBREX [Concomitant]
     Indication: ARTHRITIS
  8. RAXAR [Concomitant]
     Indication: HYPERTENSION
  9. URSA [Concomitant]
     Indication: LIVER DISORDER

REACTIONS (2)
  - DIZZINESS [None]
  - DRUG PRESCRIBING ERROR [None]
